FAERS Safety Report 9150149 (Version 1)
Quarter: 2013Q1

REPORT INFORMATION
  Report Type: Spontaneous
  Country: US (occurrence: None)
  Receive Date: 20130131
  Receipt Date: 20130131
  Transmission Date: 20140127
  Serious: Yes (Other)
  Sender: FDA-Public Use
  Company Number: B0863076A

PATIENT
  Age: 64 Year
  Sex: Female

DRUGS (1)
  1. EPOPROSTENOL SODIUM [Suspect]
     Indication: PULMONARY HYPERTENSION
     Route: 042

REACTIONS (6)
  - Hypersplenism [None]
  - Pancytopenia [None]
  - Marrow hyperplasia [None]
  - Treatment failure [None]
  - Megakaryocytes abnormal [None]
  - Splenomegaly [None]
